FAERS Safety Report 8990712 (Version 3)
Quarter: 2013Q1

REPORT INFORMATION
  Report Type: Spontaneous
  Country: US (occurrence: US)
  Receive Date: 20121228
  Receipt Date: 20130322
  Transmission Date: 20140127
  Serious: No
  Sender: FDA-Public Use
  Company Number: US-PFIZER INC-2012331236

PATIENT
  Age: 41 Year
  Sex: Female
  Weight: 73 kg

DRUGS (4)
  1. LYRICA [Suspect]
     Indication: OCCIPITAL NEURALGIA
     Dosage: 200 MG, DAILY
     Dates: start: 201109
  2. LYRICA [Suspect]
     Dosage: 50 MG, DAILY
     Dates: end: 201212
  3. AMITRIPTYLINE [Concomitant]
     Indication: PAIN MANAGEMENT
     Dosage: 50 MG, DAILY
  4. AMITRIPTYLINE [Concomitant]
     Indication: OCCIPITAL NEURALGIA

REACTIONS (3)
  - Drug administration error [Unknown]
  - Feeling abnormal [Not Recovered/Not Resolved]
  - Headache [Unknown]
